FAERS Safety Report 4861252-7 (Version None)
Quarter: 2005Q4

REPORT INFORMATION
  Report Type: 
  Country: None (occurrence: None)
  Receive Date: 20051220
  Receipt Date: 20050810
  Transmission Date: 20060501
  Serious: Yes (Hospitalization, Disabling)
  Sender: FDA-Public Use
  Company Number: US-MERCK-0508USA02078

PATIENT
  Age: 54 Year
  Sex: Male
  Weight: 116 kg

DRUGS (5)
  1. VIOXX [Suspect]
     Indication: BACK PAIN
     Route: 048
     Dates: start: 20020101
  2. VIOXX [Suspect]
     Route: 048
     Dates: start: 20030101, end: 20030801
  3. ASPIRIN [Concomitant]
     Route: 065
  4. HYDROCODONE HYDROCHLORIDE [Concomitant]
     Route: 065
  5. ACETAMINOPHEN [Concomitant]
     Route: 065

REACTIONS (8)
  - BACK DISORDER [None]
  - BLINDNESS [None]
  - BLOOD CHOLESTEROL INCREASED [None]
  - CAROTID ARTERY OCCLUSION [None]
  - HYPERTENSION [None]
  - MYOCARDIAL INFARCTION [None]
  - OCULAR VASCULAR DISORDER [None]
  - RETINAL VASCULAR THROMBOSIS [None]
